FAERS Safety Report 5555018-2 (Version None)
Quarter: 2007Q4

REPORT INFORMATION
  Report Type: 
  Country: None (occurrence: None)
  Receive Date: 20071213
  Receipt Date: 20071204
  Transmission Date: 20080405
  Serious: Yes (Hospitalization, Other)
  Sender: FDA-Public Use
  Company Number: TW-WYE-H01574707

PATIENT
  Sex: Male
  Weight: 67.5 kg

DRUGS (3)
  1. SIROLIMUS [Suspect]
     Indication: PROPHYLAXIS AGAINST TRANSPLANT REJECTION
     Dosage: 2 MG, 3 MG EVERY OTHER DAY
     Route: 048
     Dates: start: 20051109
  2. LAMIVUDINE [Concomitant]
     Dosage: UNKNOWN
     Dates: start: 20050207
  3. MYCOPHENOLATE MOFETIL [Concomitant]
     Indication: PROPHYLAXIS AGAINST TRANSPLANT REJECTION
     Dates: start: 20010206

REACTIONS (1)
  - METASTASES TO LUNG [None]
